FAERS Safety Report 4916444-5 (Version None)
Quarter: 2006Q1

REPORT INFORMATION
  Report Type: 
  Country: None (occurrence: None)
  Receive Date: 20060220
  Receipt Date: 20060127
  Transmission Date: 20060701
  Serious: Yes (Death)
  Sender: FDA-Public Use
  Company Number: IT-NOVOPROD-250814

PATIENT
  Age: 65 Year
  Sex: Male
  Weight: 68 kg

DRUGS (8)
  1. GLIBOMET [Concomitant]
  2. ZESTRIL [Concomitant]
  3. DOXAZOSIN [Concomitant]
  4. AMLODIPINE [Concomitant]
  5. LASIX [Concomitant]
  6. PREDNISONE [Concomitant]
     Dates: start: 20040429
  7. MEPRAL [Concomitant]
  8. NOVOSEVEN [Suspect]
     Indication: ACQUIRED HAEMOPHILIA

REACTIONS (2)
  - DRUG INEFFECTIVE [None]
  - HAEMATOMA [None]
